FAERS Safety Report 5905718-7 (Version None)
Quarter: 2008Q4

REPORT INFORMATION
  Report Type: 
  Country: None (occurrence: None)
  Receive Date: 20081002
  Receipt Date: 20080925
  Transmission Date: 20090506
  Serious: Yes (Hospitalization)
  Sender: FDA-Public Use
  Company Number: PHHO1996AT03004

PATIENT
  Sex: Male
  Weight: 70 kg

DRUGS (6)
  1. NEORAL [Suspect]
     Route: 048
     Dates: start: 19960930
  2. AUGMENTIN '125' [Concomitant]
     Dosage: UNSPECIFIED
     Route: 042
     Dates: start: 19961017, end: 19961020
  3. LASIX [Concomitant]
     Dosage: UNSPECIFIED
     Route: 042
     Dates: end: 19961020
  4. INSULIN MIXTARD [Concomitant]
     Dosage: UNSPECIFIED
     Route: 058
  5. AMPHOTERICIN B [Concomitant]
     Dosage: UNSPECIFIED
     Route: 048
  6. NORVASC [Concomitant]
     Dosage: UNSPECIFIED
     Route: 048

REACTIONS (3)
  - DYSPNOEA [None]
  - PLEURAL EFFUSION [None]
  - PYREXIA [None]
